FAERS Safety Report 24204732 (Version 1)
Quarter: 2024Q3

REPORT INFORMATION
  Report Type: Report from Study
  Country: US (occurrence: US)
  Receive Date: 20240813
  Receipt Date: 20240813
  Transmission Date: 20241016
  Serious: No
  Sender: SANDOZ
  Company Number: US-SANDOZ-SDZ2024US071949

PATIENT
  Age: 32 Year
  Sex: Female

DRUGS (2)
  1. GLATOPA [Suspect]
     Active Substance: GLATIRAMER ACETATE
     Indication: Multiple sclerosis
     Dosage: 40 MG, TIW, 3 X A WEEK, SPACED AT LEAST 48 HOURS APART
     Route: 058
     Dates: start: 20240807
  2. GLATOPA [Suspect]
     Active Substance: GLATIRAMER ACETATE
     Dosage: 40 MG, TIW, 3 X A WEEK, SPACED AT LEAST 48 HOURS APART
     Route: 058
     Dates: start: 20240809

REACTIONS (3)
  - Fear of injection [Unknown]
  - Injection site pain [Unknown]
  - Wrong technique in device usage process [Unknown]

NARRATIVE: CASE EVENT DATE: 20240807
